FAERS Safety Report 14957207 (Version 4)
Quarter: 2018Q4

REPORT INFORMATION
  Report Type: Report from Study
  Country: US (occurrence: US)
  Receive Date: 20180531
  Receipt Date: 20181227
  Transmission Date: 20190204
  Serious: Yes (Other)
  Sender: FDA-Public Use
  Company Number: PHEH2018US020652

PATIENT
  Sex: Female
  Weight: 54.4 kg

DRUGS (1)
  1. GLATOPA [Suspect]
     Active Substance: GLATIRAMER ACETATE
     Indication: MULTIPLE SCLEROSIS
     Dosage: 20 MG, QD (ROTATING SITES)
     Route: 058
     Dates: start: 201608

REACTIONS (3)
  - Blindness [Not Recovered/Not Resolved]
  - Device malfunction [Unknown]
  - Device leakage [Unknown]
